FAERS Safety Report 22289373 (Version 4)
Quarter: 2023Q4

REPORT INFORMATION
  Report Type: Report from Study
  Country: US (occurrence: US)
  Receive Date: 20230505
  Receipt Date: 20231122
  Transmission Date: 20240110
  Serious: Yes (Hospitalization)
  Sender: FDA-Public Use
  Company Number: US-ARGENX-2023-ARGX-US000042

PATIENT

DRUGS (4)
  1. VYVGART [Suspect]
     Active Substance: EFGARTIGIMOD ALFA-FCAB
     Indication: Product used for unknown indication
     Dosage: UNK
     Route: 042
     Dates: start: 20221117
  2. VYVGART [Suspect]
     Active Substance: EFGARTIGIMOD ALFA-FCAB
     Dosage: UNK
     Dates: start: 20230310
  3. SOLU-MEDROL [Concomitant]
     Active Substance: METHYLPREDNISOLONE SODIUM SUCCINATE
     Indication: Product used for unknown indication
     Dosage: 125 UNK
  4. PREDNISONE [Concomitant]
     Active Substance: PREDNISONE
     Indication: Product used for unknown indication

REACTIONS (16)
  - Myasthenia gravis [Unknown]
  - Blood pressure increased [Unknown]
  - Pneumonia [Unknown]
  - Feeling abnormal [Unknown]
  - Infection [Not Recovered/Not Resolved]
  - Headache [Recovered/Resolved]
  - Procedural headache [Recovering/Resolving]
  - Bone pain [Unknown]
  - Arthralgia [Unknown]
  - Chills [Unknown]
  - Back pain [Unknown]
  - Panic attack [Unknown]
  - Hypertension [Unknown]
  - Inappropriate schedule of product administration [Unknown]
  - Respiratory symptom [Unknown]
  - Nasopharyngitis [Unknown]

NARRATIVE: CASE EVENT DATE: 20221208
